FAERS Safety Report 11839509 (Version 3)
Quarter: 2017Q1

REPORT INFORMATION
  Report Type: Report from Study
  Country: GB (occurrence: GB)
  Receive Date: 20151216
  Receipt Date: 20170301
  Transmission Date: 20170428
  Serious: Yes (Hospitalization)
  Sender: FDA-Public Use
  Company Number: GB-ROCHE-1430080

PATIENT
  Age: 52 Year
  Sex: Male
  Weight: 97.2 kg

DRUGS (3)
  1. BENDAMUSTINE [Suspect]
     Active Substance: BENDAMUSTINE
     Indication: NON-HODGKIN^S LYMPHOMA UNSPECIFIED HISTOLOGY INDOLENT
     Dosage: DATE OF MOST RECENT DOSE OF BENDAMUSTINE 30/APR/2013. DOSE OF LAST STUDY DRUG ADMINISTERED 185MG.
     Route: 042
     Dates: start: 20121129
  2. ACICLOVIR [Concomitant]
     Active Substance: ACYCLOVIR
     Indication: PROPHYLAXIS
     Route: 065
     Dates: start: 20121129
  3. OBINUTUZUMAB [Suspect]
     Active Substance: OBINUTUZUMAB
     Indication: NON-HODGKIN^S LYMPHOMA UNSPECIFIED HISTOLOGY INDOLENT
     Dosage: VOLUME OF LAST DOSE ADMINITERED 250ML. DOSE CONCENTRATION 4MG/ML. DATE OF MOST RECENT DOSE OF OBINUT
     Route: 042
     Dates: start: 20121129

REACTIONS (1)
  - Febrile neutropenia [Recovered/Resolved]

NARRATIVE: CASE EVENT DATE: 20140626
